FAERS Safety Report 7715453-0 (Version None)
Quarter: 2011Q3

REPORT INFORMATION
  Report Type: 
  Country: None (occurrence: None)
  Receive Date: 20110829
  Receipt Date: 20110823
  Transmission Date: 20111222
  Serious: Yes (Other)
  Sender: FDA-Public Use
  Company Number: NL-JNJFOC-20110407667

PATIENT

DRUGS (10)
  1. RITUXIMAB [Suspect]
     Route: 064
  2. RITUXIMAB [Suspect]
     Route: 064
  3. VINCRISTINE [Suspect]
     Indication: MATERNAL EXPOSURE DURING PREGNANCY
     Route: 064
  4. DOXORUBICIN HYDROCHLORIDE [Suspect]
     Indication: MATERNAL EXPOSURE DURING PREGNANCY
     Route: 064
  5. RITUXIMAB [Suspect]
     Dosage: 6 CYCLES 2 WEEKLY
     Route: 064
  6. CYCLOPHOSPHAMIDE [Suspect]
     Indication: MATERNAL EXPOSURE DURING PREGNANCY
     Route: 064
  7. PREDNISONE [Suspect]
     Indication: MATERNAL EXPOSURE DURING PREGNANCY
     Route: 064
  8. RITUXIMAB [Suspect]
     Indication: MATERNAL EXPOSURE DURING PREGNANCY
     Route: 064
  9. RITUXIMAB [Suspect]
     Route: 064
  10. RITUXIMAB [Suspect]
     Route: 064

REACTIONS (3)
  - PREMATURE BABY [None]
  - B-LYMPHOCYTE COUNT DECREASED [None]
  - MATERNAL DRUGS AFFECTING FOETUS [None]
